FAERS Safety Report 14095273 (Version 1)
Quarter: 2017Q4

REPORT INFORMATION
  Report Type: Spontaneous
  Country: BR (occurrence: BR)
  Receive Date: 20171016
  Receipt Date: 20171016
  Transmission Date: 20180321
  Serious: Yes (Other)
  Sender: FDA-Public Use
  Company Number: BR-SA-2017SA194471

PATIENT
  Sex: Male

DRUGS (1)
  1. LEMTRADA [Suspect]
     Active Substance: ALEMTUZUMAB
     Route: 041

REACTIONS (4)
  - Hypotension [Recovering/Resolving]
  - Endotoxic shock [Recovering/Resolving]
  - Tremor [Recovering/Resolving]
  - Laryngeal oedema [Recovering/Resolving]
